FAERS Safety Report 9222614 (Version 1)
Quarter: 2013Q2

REPORT INFORMATION
  Report Type: Spontaneous
  Country: AT (occurrence: AT)
  Receive Date: 20130410
  Receipt Date: 20130410
  Transmission Date: 20140414
  Serious: Yes (Other)
  Sender: FDA-Public Use
  Company Number: AT-ROCHE-1203714

PATIENT
  Age: 85 Year
  Sex: Female
  Weight: 70 kg

DRUGS (4)
  1. MABTHERA [Suspect]
     Indication: AUTOSOMAL CHROMOSOME ANOMALY
     Route: 042
     Dates: start: 20130312, end: 20130312
  2. MEXALEN [Concomitant]
     Route: 048
     Dates: start: 20130312, end: 20130312
  3. URBASON [Concomitant]
     Route: 042
     Dates: start: 20130312, end: 20130312
  4. DIBONDRIN [Concomitant]
     Route: 042
     Dates: start: 20130312, end: 20130312

REACTIONS (4)
  - Chills [Recovered/Resolved]
  - Asthenia [Recovered/Resolved]
  - Vertigo [Recovered/Resolved]
  - Erythema [Recovered/Resolved]
